FAERS Safety Report 20467201 (Version 1)
Quarter: 2022Q1

REPORT INFORMATION
  Report Type: Spontaneous
  Country: JP (occurrence: JP)
  Receive Date: 20220214
  Receipt Date: 20220214
  Transmission Date: 20220424
  Serious: Yes (Other)
  Sender: FDA-Public Use
  Company Number: JP-STRIDES ARCOLAB LIMITED-2022SP001224

PATIENT
  Age: 69 Year
  Sex: Female

DRUGS (16)
  1. ETOPOSIDE [Suspect]
     Active Substance: ETOPOSIDE
     Indication: Adrenocortical carcinoma
     Dosage: 100 MILLIGRAM/SQ. METER, EVERY 4 WEEKS, CYCLICAL (ON DAYS 2-4)
     Route: 065
  2. ETOPOSIDE [Suspect]
     Active Substance: ETOPOSIDE
     Indication: Metastatic neoplasm
     Dosage: UNK, RE-INTIATED
     Route: 065
  3. ETOPOSIDE [Suspect]
     Active Substance: ETOPOSIDE
     Dosage: UNK, CYCLICAL (ONE CYCLE)
     Route: 065
  4. ETOPOSIDE [Suspect]
     Active Substance: ETOPOSIDE
     Dosage: UNK, CYCLICAL (SECOND CYCLE)
     Route: 065
  5. DOXORUBICIN [Suspect]
     Active Substance: DOXORUBICIN
     Indication: Adrenocortical carcinoma
     Dosage: 40 MILLIGRAM/SQ. METER, EVERY 4 WEEKS, CYCLICAL (ON DAY 1)
     Route: 065
  6. DOXORUBICIN [Suspect]
     Active Substance: DOXORUBICIN
     Indication: Metastatic neoplasm
     Dosage: UNK, RE-INITIATED
     Route: 065
  7. DOXORUBICIN [Suspect]
     Active Substance: DOXORUBICIN
     Dosage: UNK, CYCLICAL (ONE CYCLE)
     Route: 065
  8. DOXORUBICIN [Suspect]
     Active Substance: DOXORUBICIN
     Dosage: UNK, CYCLICAL (SECOND CYCLE)
     Route: 065
  9. CISPLATIN [Suspect]
     Active Substance: CISPLATIN
     Indication: Adrenocortical carcinoma
     Dosage: 40 MILLIGRAM/SQ. METER, EVERY 4 WEEKS, CYCLICAL (ON DAYS 3 AND 4)
     Route: 065
  10. CISPLATIN [Suspect]
     Active Substance: CISPLATIN
     Indication: Metastatic neoplasm
     Dosage: UNK, RE-INITIATED
     Route: 065
  11. CISPLATIN [Suspect]
     Active Substance: CISPLATIN
     Dosage: UNK, CYCLICAL (ONE CYCLE)
     Route: 065
  12. CISPLATIN [Suspect]
     Active Substance: CISPLATIN
     Dosage: UNK, CYCLICAL (SECOND CYCLE)
     Route: 065
  13. MITOTANE [Suspect]
     Active Substance: MITOTANE
     Indication: Adrenocortical carcinoma
     Dosage: UNK
     Route: 065
  14. MITOTANE [Suspect]
     Active Substance: MITOTANE
     Indication: Metastatic neoplasm
     Dosage: 1500 MILLIGRAM PER DAY
     Route: 048
  15. MITOTANE [Suspect]
     Active Substance: MITOTANE
     Dosage: UNK, PROGRESSIVELY INCREASED
     Route: 065
  16. MITOTANE [Suspect]
     Active Substance: MITOTANE
     Dosage: UNK, DOSE INCREASED
     Route: 065

REACTIONS (3)
  - Adrenal insufficiency [Unknown]
  - Febrile neutropenia [Unknown]
  - Off label use [Unknown]
